FAERS Safety Report 23784910 (Version 3)
Quarter: 2025Q3

REPORT INFORMATION
  Report Type: Report from Study
  Country: BR (occurrence: BR)
  Receive Date: 20240425
  Receipt Date: 20250820
  Transmission Date: 20251021
  Serious: Yes (Other)
  Sender: TAKEDA
  Company Number: BR-TAKEDA-2024TUS037279

PATIENT
  Age: 59 Year
  Sex: Male

DRUGS (1)
  1. VEDOLIZUMAB [Suspect]
     Active Substance: VEDOLIZUMAB
     Indication: Colitis ulcerative
     Dosage: 300 MILLIGRAM, Q4WEEKS
     Dates: start: 20230714

REACTIONS (17)
  - Diarrhoea haemorrhagic [Recovering/Resolving]
  - Pneumonia [Recovered/Resolved]
  - Chronic sinusitis [Unknown]
  - Anaemia [Recovered/Resolved]
  - Inappropriate schedule of product administration [Unknown]
  - Weight decreased [Recovering/Resolving]
  - Diarrhoea [Recovered/Resolved]
  - Colonoscopy abnormal [Recovering/Resolving]
  - Emotional disorder [Unknown]
  - Dyspepsia [Unknown]
  - Abdominal pain [Recovering/Resolving]
  - Malaise [Recovering/Resolving]
  - Asthenia [Recovered/Resolved]
  - Nasopharyngitis [Unknown]
  - Fatigue [Recovering/Resolving]
  - Decreased immune responsiveness [Recovered/Resolved]
  - Herpes virus infection [Recovered/Resolved]

NARRATIVE: CASE EVENT DATE: 20231001
